FAERS Safety Report 13088180 (Version 1)
Quarter: 2017Q1

REPORT INFORMATION
  Report Type: Spontaneous
  Country: US (occurrence: US)
  Receive Date: 20170103
  Receipt Date: 20170103
  Transmission Date: 20170428
  Serious: Yes (Other)
  Sender: FDA-Public Use
  Company Number: None

PATIENT
  Age: 29 Year
  Sex: Male
  Weight: 84.6 kg

DRUGS (1)
  1. OXYMETAZOLINE HCL [Suspect]
     Active Substance: OXYMETAZOLINE HYDROCHLORIDE
     Indication: NASAL CONGESTION
     Dosage: ?          QUANTITY:3 SPRAY(S);OTHER ROUTE:IN THE NOSE?
     Route: 055
     Dates: start: 20161227, end: 20161230

REACTIONS (1)
  - Anosmia [None]

NARRATIVE: CASE EVENT DATE: 20161228
